FAERS Safety Report 21101335 (Version 1)
Quarter: 2022Q3

REPORT INFORMATION
  Report Type: Spontaneous
  Country: CN (occurrence: CN)
  Receive Date: 20220719
  Receipt Date: 20220719
  Transmission Date: 20221027
  Serious: Yes (Other)
  Sender: FDA-Public Use
  Company Number: CN-PFIZER INC-PV202200024223

PATIENT
  Age: 33 Year
  Sex: Female
  Weight: 67.8 kg

DRUGS (5)
  1. HEMABATE [Suspect]
     Active Substance: CARBOPROST TROMETHAMINE
     Indication: Postpartum haemorrhage
     Dosage: 250 UG, 1X/DAY
     Route: 030
     Dates: start: 20220706, end: 20220706
  2. HEMABATE [Suspect]
     Active Substance: CARBOPROST TROMETHAMINE
     Indication: Uterine hypotonus
  3. LIDOCAINE HYDROCHLORIDE [Concomitant]
     Active Substance: LIDOCAINE HYDROCHLORIDE
     Indication: Anaesthesia procedure
     Dosage: 20 ML, 1X/DAY
     Route: 037
     Dates: start: 20220706, end: 20220706
  4. OXYTOCIN [Concomitant]
     Active Substance: OXYTOCIN
     Indication: Uterine hypotonus
     Dosage: 20 UNITS, 1X/DAY
     Route: 030
     Dates: start: 20220706, end: 20220706
  5. CALCIUM GLUCONATE [Concomitant]
     Active Substance: CALCIUM GLUCONATE
     Indication: Uterine hypotonus
     Dosage: 1 G, 1X/DAY
     Route: 041
     Dates: start: 20220706, end: 20220707

REACTIONS (5)
  - Rash [Recovering/Resolving]
  - Pruritus [Recovering/Resolving]
  - Papule [Recovering/Resolving]
  - Body temperature increased [Recovering/Resolving]
  - Hypersensitivity [Recovering/Resolving]

NARRATIVE: CASE EVENT DATE: 20220706
